FAERS Safety Report 9381481 (Version 1)
Quarter: 2013Q3

REPORT INFORMATION
  Report Type: Spontaneous
  Country: US (occurrence: US)
  Receive Date: 20130703
  Receipt Date: 20130703
  Transmission Date: 20140515
  Serious: Yes (Hospitalization, Other)
  Sender: FDA-Public Use
  Company Number: US-ROCHE-1241859

PATIENT
  Age: 37 Year
  Sex: Female
  Weight: 68.1 kg

DRUGS (1)
  1. ACCUTANE [Suspect]
     Indication: ACNE
     Route: 065
     Dates: start: 19961014, end: 199704

REACTIONS (7)
  - Colitis ischaemic [Unknown]
  - Depression [Unknown]
  - Inflammatory bowel disease [Unknown]
  - Blood cholesterol increased [Unknown]
  - Blood triglycerides increased [Unknown]
  - Arthralgia [Unknown]
  - Lip dry [Unknown]
